FAERS Safety Report 7204502-4 (Version None)
Quarter: 2010Q4

REPORT INFORMATION
  Report Type: 
  Country: None (occurrence: None)
  Receive Date: 20101217
  Receipt Date: 20101209
  Transmission Date: 20110411
  Serious: Yes (Hospitalization)
  Sender: FDA-Public Use
  Company Number: 2010SP063919

PATIENT
  Age: 40 Year
  Sex: Male

DRUGS (2)
  1. REMERGIL (MIRTAZAPINE /01293201/) [Suspect]
     Indication: PAIN
  2. REMERGIL (MIRTAZAPINE /01293201/) [Suspect]
     Indication: SLEEP DISORDER

REACTIONS (4)
  - ARTHRALGIA [None]
  - DRUG TOXICITY [None]
  - GAMMA-GLUTAMYLTRANSFERASE INCREASED [None]
  - RHABDOMYOLYSIS [None]
